FAERS Safety Report 6912317-7 (Version None)
Quarter: 2010Q3

REPORT INFORMATION
  Report Type: 
  Country: None (occurrence: None)
  Receive Date: 20100806
  Receipt Date: 20080314
  Transmission Date: 20110219
  Serious: No
  Sender: FDA-Public Use
  Company Number: US-PFIZER INC-2008024097

PATIENT
  Sex: Female
  Weight: 86.363 kg

DRUGS (9)
  1. DETROL LA [Suspect]
     Indication: POLLAKIURIA
     Dates: start: 20071001, end: 20080301
  2. AMIODARONE HCL [Concomitant]
     Indication: ARRHYTHMIA
  3. DYAZIDE [Concomitant]
  4. MEVACOR [Concomitant]
  5. WARFARIN SODIUM [Concomitant]
  6. CLONIDINE [Concomitant]
  7. STALEVO 100 [Concomitant]
  8. KLONOPIN [Concomitant]
  9. TOPAMAX [Concomitant]

REACTIONS (2)
  - CONSTIPATION [None]
  - DRY MOUTH [None]
